FAERS Safety Report 11700379 (Version 1)
Quarter: 2015Q4

REPORT INFORMATION
  Report Type: Report from Study
  Country: US (occurrence: US)
  Receive Date: 20151105
  Receipt Date: 20151105
  Transmission Date: 20160304
  Serious: Yes (Hospitalization, Other)
  Sender: FDA-Public Use
  Company Number: US-ABBVIE-15K-163-1492840-00

PATIENT
  Sex: Male
  Weight: 131.66 kg

DRUGS (4)
  1. BENAZEPRIL HYDROCHLORIDE. [Concomitant]
     Active Substance: BENAZEPRIL HYDROCHLORIDE
     Indication: HYPERTENSION
  2. HUMIRA [Suspect]
     Active Substance: ADALIMUMAB
     Indication: PSORIASIS
     Route: 058
     Dates: start: 2012, end: 2015
  3. HUMIRA [Suspect]
     Active Substance: ADALIMUMAB
     Route: 058
     Dates: start: 2015, end: 201505
  4. HYDROCHLOROTHIAZIDE. [Concomitant]
     Active Substance: HYDROCHLOROTHIAZIDE
     Indication: HYPERTENSION

REACTIONS (8)
  - Abasia [Recovered/Resolved]
  - Thrombosis [Recovering/Resolving]
  - Musculoskeletal chest pain [Recovered/Resolved]
  - Back pain [Recovering/Resolving]
  - Psoriasis [Not Recovered/Not Resolved]
  - Dyspnoea [Recovering/Resolving]
  - Spinal cord compression [Recovering/Resolving]
  - Intervertebral disc disorder [Recovering/Resolving]

NARRATIVE: CASE EVENT DATE: 2015
